FAERS Safety Report 5330700-0 (Version None)
Quarter: 2007Q2

REPORT INFORMATION
  Report Type: 
  Country: None (occurrence: None)
  Receive Date: 20070522
  Receipt Date: 20070514
  Transmission Date: 20071010
  Serious: Yes (Other)
  Sender: FDA-Public Use
  Company Number: PHEH2007US05585

PATIENT
  Age: 56 Year
  Sex: Female

DRUGS (9)
  1. PREMARIN [Suspect]
     Indication: MENOPAUSE
     Dosage: 0.625 UNK, UNK
     Route: 048
     Dates: start: 19940125, end: 19950601
  2. PREMARIN [Suspect]
     Dosage: UNK, QD
     Dates: start: 19960101, end: 19990201
  3. PROVERA [Suspect]
     Indication: MENOPAUSE
     Dosage: 10 MG, UNK
     Dates: start: 19940125, end: 19950601
  4. PROVERA [Suspect]
     Dates: start: 19960101, end: 19990201
  5. ESTRATEST H.S. [Suspect]
     Indication: MENOPAUSE
     Dates: start: 19971201, end: 19990201
  6. PREMPRO [Suspect]
     Indication: MENOPAUSE
     Dosage: 0.625/2.5 MG, UNK
     Route: 048
     Dates: start: 19950601, end: 20020301
  7. CLIMARA [Suspect]
     Route: 062
  8. DEPO-ESTRADIOL [Suspect]
     Indication: MENOPAUSE
     Dosage: 1 MG, QMO
     Route: 030
  9. COMBIPATCH [Suspect]
     Indication: MENOPAUSE
     Dosage: 0.05/0.14 MG/DAY, UNK
     Route: 062
     Dates: start: 19991018, end: 20000314

REACTIONS (17)
  - ARTHRALGIA [None]
  - BREAST CANCER [None]
  - BREAST RECONSTRUCTION [None]
  - COLONOSCOPY [None]
  - DEPRESSION [None]
  - DIVERTICULUM [None]
  - FALL [None]
  - GRANULOMA [None]
  - HOT FLUSH [None]
  - INTESTINAL POLYP [None]
  - KELOID SCAR [None]
  - LIGAMENT RUPTURE [None]
  - LYMPHADENOPATHY [None]
  - OSTEOPENIA [None]
  - PAIN IN EXTREMITY [None]
  - POLYPECTOMY [None]
  - RADICAL MASTECTOMY [None]
